FAERS Safety Report 18388788 (Version 3)
Quarter: 2020Q4

REPORT INFORMATION
  Report Type: Spontaneous
  Country: US (occurrence: US)
  Receive Date: 20201015
  Receipt Date: 20201022
  Transmission Date: 20210114
  Serious: No
  Sender: FDA-Public Use
  Company Number: US-PFIZER INC-2020398439

PATIENT
  Age: 74 Year
  Sex: Female
  Weight: 48.53 kg

DRUGS (1)
  1. REVATIO [Suspect]
     Active Substance: SILDENAFIL CITRATE
     Indication: RAYNAUD^S PHENOMENON
     Dosage: 20 MG, 3X/DAY

REACTIONS (3)
  - Off label use [Unknown]
  - Alopecia [Unknown]
  - Product use in unapproved indication [Unknown]
